FAERS Safety Report 18615330 (Version 1)
Quarter: 2020Q4

REPORT INFORMATION
  Report Type: Spontaneous
  Country: US (occurrence: US)
  Receive Date: 20201215
  Receipt Date: 20201215
  Transmission Date: 20210114
  Serious: No
  Sender: FDA-Public Use
  Company Number: NVSC2020US332260

PATIENT
  Age: 62 Year
  Sex: Female

DRUGS (1)
  1. ILARIS [Suspect]
     Active Substance: CANAKINUMAB
     Indication: STILL^S DISEASE
     Dosage: 300 MG, ONCE 4 WEEKS
     Route: 058
     Dates: start: 20201106

REACTIONS (6)
  - Nausea [Unknown]
  - Arthralgia [Unknown]
  - Headache [Unknown]
  - Myalgia [Unknown]
  - Fatigue [Unknown]
  - Stomatitis [Unknown]

NARRATIVE: CASE EVENT DATE: 20201106
